FAERS Safety Report 5124779-9 (Version None)
Quarter: 2006Q4

REPORT INFORMATION
  Report Type: 
  Country: None (occurrence: None)
  Receive Date: 20061011
  Receipt Date: 20060928
  Transmission Date: 20070319
  Serious: Yes (Other)
  Sender: FDA-Public Use
  Company Number: PHBS2006IN15113

PATIENT
  Age: 30 Year
  Sex: Female

DRUGS (9)
  1. CYCLOSPORINE [Suspect]
     Indication: STEM CELL TRANSPLANT
     Route: 065
     Dates: start: 20030527
  2. METHOTREXATE [Concomitant]
     Indication: STEM CELL TRANSPLANT
     Dates: start: 20030527
  3. CYCLOPHOSPHAMIDE [Concomitant]
     Indication: STEM CELL TRANSPLANT
     Dosage: 120 MG/KG/D
     Route: 065
  4. BUSULPHAN [Concomitant]
     Dosage: 16 MG/KG/D
     Route: 065
  5. RED BLOOD CELLS [Concomitant]
  6. PLATELETS [Concomitant]
  7. SEPTRAN [Concomitant]
  8. PENICILLIN [Concomitant]
  9. ACYCLOVIR [Concomitant]

REACTIONS (20)
  - ACRODYNIA [None]
  - ACUTE GRAFT VERSUS HOST DISEASE IN LIVER [None]
  - ACUTE GRAFT VERSUS HOST DISEASE IN SKIN [None]
  - BLOOD ALKALINE PHOSPHATASE INCREASED [None]
  - BLOOD BILIRUBIN INCREASED [None]
  - CONJUNCTIVAL DISORDER [None]
  - FEBRILE NEUTROPENIA [None]
  - HAIR TEXTURE ABNORMAL [None]
  - HEPATOSPLENOMEGALY [None]
  - HERPES ZOSTER [None]
  - HYPOTRICHOSIS [None]
  - JAUNDICE CHOLESTATIC [None]
  - MOUTH ULCERATION [None]
  - NAIL DYSTROPHY [None]
  - ORAL MUCOSA EROSION [None]
  - ORAL MUCOSAL DISORDER [None]
  - RASH MACULO-PAPULAR [None]
  - TRANSAMINASES INCREASED [None]
  - WEIGHT DECREASED [None]
  - YELLOW SKIN [None]
